FAERS Safety Report 5885647-8 (Version None)
Quarter: 2008Q3

REPORT INFORMATION
  Report Type: 
  Country: None (occurrence: None)
  Receive Date: 20080912
  Receipt Date: 20080829
  Transmission Date: 20090109
  Serious: Yes (Death)
  Sender: FDA-Public Use
  Company Number: 920#8#2008-00029

PATIENT

DRUGS (1)
  1. NIFEDIPINE [Suspect]
     Indication: PREGNANCY INDUCED HYPERTENSION
     Dosage: TRANSPLACENTAL
     Route: 064

REACTIONS (2)
  - DEATH NEONATAL [None]
  - MATERNAL DRUGS AFFECTING FOETUS [None]
